FAERS Safety Report 8836660 (Version 1)
Quarter: 2012Q4

REPORT INFORMATION
  Report Type: Spontaneous
  Country: JP (occurrence: None)
  Receive Date: 20121010
  Receipt Date: 20121010
  Transmission Date: 20130627
  Serious: Yes (Other)
  Sender: FDA-Public Use
  Company Number: VAL_00904_2012

PATIENT
  Sex: Female

DRUGS (11)
  1. PARLODEL [Suspect]
     Indication: PRODUCT USED FOR UNKNOWN INDICATION
     Route: 048
  2. HALOPERIDOL [Concomitant]
  3. PEROSPIRONE HYDROCHLORIDE [Concomitant]
  4. LORAZEPAM [Concomitant]
  5. BIPERIDEN HYDROCHLORIDE [Concomitant]
  6. OLANZAPINE [Concomitant]
  7. BROTIZOLAM [Concomitant]
  8. FLUNITRAZEPAM [Concomitant]
  9. NITRAZEPAM [Concomitant]
  10. CHLORPROMAZINE HYDROCHLORIDE [Concomitant]
  11. DIAZEPAM [Concomitant]

REACTIONS (3)
  - Lactation disorder [None]
  - Increased appetite [None]
  - Extrapyramidal disorder [None]
